FAERS Safety Report 7084649-6 (Version None)
Quarter: 2010Q4

REPORT INFORMATION
  Report Type: 
  Country: None (occurrence: None)
  Receive Date: 20101104
  Receipt Date: 20101028
  Transmission Date: 20110411
  Serious: Yes (Other)
  Sender: FDA-Public Use
  Company Number: PHHY2010DE66139

PATIENT
  Sex: Male

DRUGS (10)
  1. RASILEZ [Suspect]
     Indication: HYPERTENSION
     Dosage: 37.5/DAY
     Dates: start: 20090901
  2. RASILEZ [Suspect]
     Dosage: 75 MG/DAY
  3. RASILEZ [Suspect]
     Dosage: 112 MG/DAY
  4. RASILEZ [Suspect]
     Dosage: 150 MG DAILY
     Dates: end: 20101001
  5. TRIAMTERENE AND HYDROCHLOROTHIAZIDE [Concomitant]
     Dosage: UNK
  6. DIURETICS [Concomitant]
  7. TORASEMIDE [Concomitant]
  8. EZETIMIBE/SIMVASTATIN [Concomitant]
  9. GODAMED [Concomitant]
  10. TRIMIPRAMINE MALEATE [Concomitant]

REACTIONS (5)
  - AGITATION [None]
  - CIRCULATORY COLLAPSE [None]
  - HEART RATE DECREASED [None]
  - HYPOTENSION [None]
  - TREMOR [None]
